FAERS Safety Report 7431556-2 (Version None)
Quarter: 2011Q2

REPORT INFORMATION
  Report Type: 
  Country: None (occurrence: None)
  Receive Date: 20110422
  Receipt Date: 20110210
  Transmission Date: 20111010
  Serious: No
  Sender: FDA-Public Use
  Company Number: US-TEVA-267125USA

PATIENT
  Sex: Female
  Weight: 55.388 kg

DRUGS (2)
  1. INSULIN PUMP [Concomitant]
     Indication: DIABETES MELLITUS
     Dates: start: 20110101
  2. PLAN B ONE-STEP [Suspect]
     Indication: POST COITAL CONTRACEPTION
     Dosage: 1.5 MILLIGRAM;
     Route: 048
     Dates: start: 20110205, end: 20110205

REACTIONS (5)
  - ABDOMINAL DISTENSION [None]
  - WEIGHT DECREASED [None]
  - GASTROINTESTINAL SOUNDS ABNORMAL [None]
  - MENSTRUATION IRREGULAR [None]
  - ABDOMINAL PAIN [None]
